FAERS Safety Report 21100954 (Version 2)
Quarter: 2022Q3

REPORT INFORMATION
  Report Type: Spontaneous
  Country: US (occurrence: None)
  Receive Date: 20220719
  Receipt Date: 20220726
  Transmission Date: 20221027
  Serious: Yes (Other)
  Sender: FDA-Public Use
  Company Number: 2022A252767

PATIENT
  Age: 72 Year
  Sex: Female
  Weight: 59.4 kg

DRUGS (1)
  1. TAGRISSO [Suspect]
     Active Substance: OSIMERTINIB
     Indication: Small cell lung cancer
     Route: 048
     Dates: start: 202109

REACTIONS (15)
  - Osteomyelitis [Unknown]
  - Blood cholesterol increased [Unknown]
  - Hypertension [Unknown]
  - Pustule [Unknown]
  - Carotid artery disease [Unknown]
  - Skin texture abnormal [Not Recovered/Not Resolved]
  - Skin exfoliation [Not Recovered/Not Resolved]
  - Sleep disorder due to a general medical condition [Unknown]
  - Visual impairment [Unknown]
  - Ophthalmic migraine [Unknown]
  - Rash [Not Recovered/Not Resolved]
  - Rash macular [Unknown]
  - Folliculitis [Unknown]
  - Dry skin [Not Recovered/Not Resolved]
  - Rash pruritic [Not Recovered/Not Resolved]

NARRATIVE: CASE EVENT DATE: 20220101
